FAERS Safety Report 14089815 (Version 1)
Quarter: 2017Q4

REPORT INFORMATION
  Report Type: Spontaneous
  Country: US (occurrence: US)
  Receive Date: 20171014
  Receipt Date: 20171014
  Transmission Date: 20180321
  Serious: No
  Sender: FDA-Public Use
  Company Number: US-SA-2017SA170615

PATIENT
  Sex: Female

DRUGS (5)
  1. LISINOPRIL. [Suspect]
     Active Substance: LISINOPRIL
     Route: 065
  2. LOSARTAN. [Concomitant]
     Active Substance: LOSARTAN
  3. ALLER-EASE [Concomitant]
  4. MOTRIN [Concomitant]
     Active Substance: IBUPROFEN
  5. AUBAGIO [Suspect]
     Active Substance: TERIFLUNOMIDE
     Indication: MULTIPLE SCLEROSIS
     Route: 048

REACTIONS (2)
  - Blood pressure increased [Unknown]
  - Cough [Unknown]
